FAERS Safety Report 23284483 (Version 1)
Quarter: 2023Q4

REPORT INFORMATION
  Report Type: Spontaneous
  Country: PT (occurrence: PT)
  Receive Date: 20231211
  Receipt Date: 20231211
  Transmission Date: 20240110
  Serious: Yes (Life-Threatening, Hospitalization, Other)
  Sender: FDA-Public Use
  Company Number: PT-SERVIER-S23011776

PATIENT
  Age: 22 Year
  Sex: Female

DRUGS (5)
  1. SIMVASTATIN [Suspect]
     Active Substance: SIMVASTATIN
     Indication: Product used for unknown indication
     Dosage: UNK
     Route: 065
  2. FENOFIBRATE [Suspect]
     Active Substance: FENOFIBRATE
     Indication: Product used for unknown indication
     Dosage: UNK
     Route: 065
  3. METFORMIN [Suspect]
     Active Substance: METFORMIN HYDROCHLORIDE
     Indication: Product used for unknown indication
     Dosage: UNK
     Route: 065
  4. AMLODIPINE BESYLATE\PERINDOPRIL ERBUMINE [Suspect]
     Active Substance: AMLODIPINE BESYLATE\PERINDOPRIL ERBUMINE
     Indication: Product used for unknown indication
     Dosage: UNK
     Route: 065
  5. ESOMEPRAZOLE [Suspect]
     Active Substance: ESOMEPRAZOLE
     Indication: Product used for unknown indication
     Dosage: UNK
     Route: 065

REACTIONS (19)
  - Septic shock [Unknown]
  - Hepatic cytolysis [Unknown]
  - Hyperthermia malignant [Unknown]
  - Respiratory failure [Unknown]
  - Distributive shock [Unknown]
  - Poisoning deliberate [Recovered/Resolved]
  - Quadriparesis [Unknown]
  - Rhabdomyolysis [Unknown]
  - Multiple organ dysfunction syndrome [Recovering/Resolving]
  - Renal failure [Unknown]
  - Lactic acidosis [Unknown]
  - Sepsis [Recovering/Resolving]
  - Toxicity to various agents [Recovered/Resolved]
  - Peripheral motor neuropathy [Unknown]
  - Myopathy [Unknown]
  - Posterior reversible encephalopathy syndrome [Recovering/Resolving]
  - Hypotension [Unknown]
  - Peripheral sensory neuropathy [Unknown]
  - Tachycardia [Unknown]
